FAERS Safety Report 6590553-X (Version None)
Quarter: 2010Q1

REPORT INFORMATION
  Report Type: 
  Country: None (occurrence: None)
  Receive Date: 20100219
  Receipt Date: 20100208
  Transmission Date: 20100710
  Serious: Yes (Life-Threatening, Other)
  Sender: FDA-Public Use
  Company Number: GB-PFIZER INC-2008150935

PATIENT
  Age: 92 Year
  Sex: Female

DRUGS (5)
  1. EXEMESTANE [Suspect]
     Indication: BREAST CANCER
     Dosage: 25 MG, 1X/DAY
     Route: 048
     Dates: start: 20011106, end: 20081113
  2. AMOXICILLIN [Concomitant]
     Indication: LOWER RESPIRATORY TRACT INFECTION
     Dosage: 250 MG, 3X/DAY
     Route: 048
     Dates: start: 20081112, end: 20081113
  3. PARACETAMOL [Concomitant]
     Indication: BACK PAIN
     Dosage: 1 G, 2DF, AS NEEDED
     Route: 048
     Dates: start: 19960101
  4. ACEON [Concomitant]
     Indication: HYPERTENSION
     Dosage: 4 MG, 1X/DAY
     Route: 048
     Dates: start: 20060506
  5. KETOPROFEN [Concomitant]
     Indication: BACK PAIN
     Route: 061

REACTIONS (4)
  - HAEMATEMESIS [None]
  - HAEMOGLOBIN DECREASED [None]
  - MELAENA [None]
  - OESOPHAGEAL ULCER [None]
